FAERS Safety Report 7799039-8 (Version None)
Quarter: 2011Q4

REPORT INFORMATION
  Report Type: 
  Country: None (occurrence: None)
  Receive Date: 20111004
  Receipt Date: 20111004
  Transmission Date: 20120403
  Serious: No
  Sender: FDA-Public Use
  Company Number: None

PATIENT
  Sex: Male
  Weight: 91.6266 kg

DRUGS (1)
  1. FENTANYL CITRATE [Suspect]
     Indication: SEDATION
     Dosage: 150 MCG X1 IV FENTANYL + 6 MG X 1 IV VERSED
     Route: 042
     Dates: start: 20110929

REACTIONS (1)
  - DRUG INEFFECTIVE [None]
